FAERS Safety Report 13798168 (Version 1)
Quarter: 2017Q3

REPORT INFORMATION
  Report Type: Spontaneous
  Country: US (occurrence: US)
  Receive Date: 20170726
  Receipt Date: 20170726
  Transmission Date: 20171127
  Serious: Yes (Life-Threatening, Hospitalization, Disabling, Other)
  Sender: FDA-Public Use
  Company Number: None

PATIENT
  Age: 71 Year
  Sex: Female
  Weight: 63.45 kg

DRUGS (1)
  1. SUTENT [Suspect]
     Active Substance: SUNITINIB MALATE
     Indication: GASTROINTESTINAL STROMAL TUMOUR
     Dosage: ?          QUANTITY:1 CAPSULE(S);?
     Route: 048
     Dates: start: 20170510, end: 20170526

REACTIONS (18)
  - Pain in extremity [None]
  - Urine abnormality [None]
  - Abnormal dreams [None]
  - Pancreatitis [None]
  - Oesophageal ulcer [None]
  - Mental disorder [None]
  - Loss of personal independence in daily activities [None]
  - Weight decreased [None]
  - Gait disturbance [None]
  - Herpes zoster [None]
  - Vomiting [None]
  - Asthenia [None]
  - Alopecia [None]
  - Stomatitis [None]
  - Impaired self-care [None]
  - Family stress [None]
  - Chromaturia [None]
  - Hepatic function abnormal [None]

NARRATIVE: CASE EVENT DATE: 20170531
